FAERS Safety Report 10189335 (Version 2)
Quarter: 2014Q2

REPORT INFORMATION
  Report Type: Spontaneous
  Country: US (occurrence: US)
  Receive Date: 20140522
  Receipt Date: 20140522
  Transmission Date: 20141212
  Serious: No
  Sender: FDA-Public Use
  Company Number: US-ASTRAZENECA-2013SE48448

PATIENT
  Age: 40 Year
  Sex: Female

DRUGS (3)
  1. PULMICORT FLEXHALER [Suspect]
     Indication: ASTHMA
     Route: 055
  2. VENTOLIN [Concomitant]
  3. LEVOTHYROXIN [Concomitant]

REACTIONS (2)
  - Lung disorder [Unknown]
  - Chest discomfort [Recovered/Resolved]
